FAERS Safety Report 11639778 (Version 1)
Quarter: 2015Q4

REPORT INFORMATION
  Report Type: Spontaneous
  Country: US (occurrence: None)
  Receive Date: 20151016
  Receipt Date: 20151016
  Transmission Date: 20160304
  Serious: No
  Sender: FDA-Public Use
  Company Number: None

PATIENT
  Age: 79 Year
  Sex: Female

DRUGS (21)
  1. HCTZ 25 MG ACCORD HEALT [Suspect]
     Active Substance: HYDROCHLOROTHIAZIDE
     Indication: HYPERSENSITIVITY
     Dosage: 1 PILL
     Route: 048
     Dates: start: 20151006, end: 20151012
  2. CARAFATE SUS [Concomitant]
  3. CLONIDINE TABLETS 0.3 MG [Concomitant]
     Active Substance: CLONIDINE
  4. VITAMIN D2 [Concomitant]
     Active Substance: ERGOCALCIFEROL
  5. RANITIDINE [Concomitant]
     Active Substance: RANITIDINE\RANITIDINE HYDROCHLORIDE
  6. HYDROXYCHLOROQUINE [Concomitant]
     Active Substance: HYDROXYCHLOROQUINE
  7. HYDROCHLOROT [Concomitant]
     Active Substance: HYDROCHLOROTHIAZIDE
  8. GLUCOSAMINE [Concomitant]
     Active Substance: GLUCOSAMINE
  9. FISH OIL [Concomitant]
     Active Substance: FISH OIL
  10. PRAVASTATIN [Concomitant]
     Active Substance: PRAVASTATIN\PRAVASTATIN SODIUM
  11. ECOTRIN [Concomitant]
     Active Substance: ASPIRIN
  12. PRIMIDOME [Concomitant]
  13. QUINAPRIL [Concomitant]
     Active Substance: QUINAPRIL\QUINAPRIL HYDROCHLORIDE
  14. MYRBETRIQ EPIPEN [Concomitant]
  15. AMLODIPINE [Concomitant]
     Active Substance: AMLODIPINE BESYLATE
  16. VITAMIN C [Concomitant]
     Active Substance: ASCORBIC ACID
  17. CALCIUM [Concomitant]
     Active Substance: CALCIUM
  18. ESTRADIOL. [Concomitant]
     Active Substance: ESTRADIOL
  19. TOPAMAX [Concomitant]
     Active Substance: TOPIRAMATE
  20. TRIAMCINOLON LOTION [Concomitant]
  21. MYRBETRIQ [Concomitant]
     Active Substance: MIRABEGRON

REACTIONS (3)
  - Pruritus [None]
  - Drug hypersensitivity [None]
  - Dry skin [None]

NARRATIVE: CASE EVENT DATE: 20151012
